FAERS Safety Report 12761876 (Version 3)
Quarter: 2016Q4

REPORT INFORMATION
  Report Type: Spontaneous
  Country: US (occurrence: US)
  Receive Date: 20160920
  Receipt Date: 20161117
  Transmission Date: 20170207
  Serious: Yes (Other)
  Sender: FDA-Public Use
  Company Number: US-JNJFOC-20160918714

PATIENT
  Sex: Male
  Weight: 78.47 kg

DRUGS (2)
  1. ASPIRIN. [Concomitant]
     Active Substance: ASPIRIN
     Route: 065
  2. INVOKAMET [Suspect]
     Active Substance: CANAGLIFLOZIN\METFORMIN HYDROCHLORIDE
     Indication: TYPE 2 DIABETES MELLITUS
     Dosage: 50/ 500 MG
     Route: 048
     Dates: start: 20160609, end: 20160819

REACTIONS (2)
  - Tubulointerstitial nephritis [Recovered/Resolved]
  - Glycosylated haemoglobin increased [Unknown]
